FAERS Safety Report 17466433 (Version 1)
Quarter: 2020Q1

REPORT INFORMATION
  Report Type: Spontaneous
  Country: FI (occurrence: FI)
  Receive Date: 20200227
  Receipt Date: 20200227
  Transmission Date: 20200409
  Serious: Yes (Other)
  Sender: FDA-Public Use
  Company Number: FI-ROCHE-2554829

PATIENT
  Sex: Male

DRUGS (1)
  1. HEMLIBRA [Suspect]
     Active Substance: EMICIZUMAB-KXWH
     Indication: FACTOR VIII DEFICIENCY
     Route: 065

REACTIONS (3)
  - Osteonecrosis [Not Recovered/Not Resolved]
  - Sensory disturbance [Unknown]
  - Arthralgia [Not Recovered/Not Resolved]
